FAERS Safety Report 19013823 (Version 1)
Quarter: 2021Q1

REPORT INFORMATION
  Report Type: Other
  Country: PL (occurrence: PL)
  Receive Date: 20210315
  Receipt Date: 20210315
  Transmission Date: 20210420
  Serious: Yes (Other)
  Sender: FDA-Public Use
  Company Number: PL-CELLTRION INC.-2021PL003116

PATIENT

DRUGS (2)
  1. TRASTUZUMAB (UNKNOWN) [Suspect]
     Active Substance: TRASTUZUMAB
     Indication: HER2 POSITIVE BREAST CANCER
     Route: 065
  2. PERTUZUMAB. [Suspect]
     Active Substance: PERTUZUMAB
     Indication: HER2 POSITIVE BREAST CANCER
     Route: 065

REACTIONS (5)
  - Brain neoplasm malignant [Unknown]
  - Disease recurrence [Unknown]
  - Metastases to breast [Unknown]
  - Meningioma malignant [Unknown]
  - Mastectomy [Unknown]

NARRATIVE: CASE EVENT DATE: 20200429
